FAERS Safety Report 20626497 (Version 1)
Quarter: 2022Q1

REPORT INFORMATION
  Report Type: Spontaneous
  Country: NO (occurrence: NO)
  Receive Date: 20220323
  Receipt Date: 20220323
  Transmission Date: 20220423
  Serious: Yes (Other)
  Sender: FDA-Public Use
  Company Number: NO-ABBVIE-22K-122-4325564-00

PATIENT
  Age: 70 Year
  Sex: Female

DRUGS (3)
  1. VALPROIC ACID [Suspect]
     Active Substance: VALPROIC ACID
     Indication: Product used for unknown indication
     Route: 065
  2. LAMOTRIGINE [Suspect]
     Active Substance: LAMOTRIGINE
     Indication: Epilepsy
     Route: 048
  3. LAMOTRIGINE [Suspect]
     Active Substance: LAMOTRIGINE
     Indication: Depressive symptom

REACTIONS (8)
  - Angioedema [Recovering/Resolving]
  - Lip ulceration [Recovering/Resolving]
  - Neutropenia [Recovering/Resolving]
  - Pancytopenia [Recovering/Resolving]
  - Rash macular [Recovering/Resolving]
  - Drug interaction [Unknown]
  - C-reactive protein increased [Unknown]
  - Alanine aminotransferase increased [Unknown]

NARRATIVE: CASE EVENT DATE: 20200722
